FAERS Safety Report 6342349 (Version 6)
Quarter: 2012Q4

REPORT INFORMATION
  Report Type: 
  Country: FR (occurrence: US)
  Receive Date: 20070626
  Receipt Date: 20121017
  Transmission Date: 20130627
  Serious: Yes (Other)
  Sender: FDA-Public Use
  Company Number: PHEH2007US08976

PATIENT
  Age: 53 None
  Sex: Female
  Weight: 47.62 kg

DRUGS (12)
  1. ESTRADERM [Suspect]
     Indication: MENOPAUSE
     Dosage: 0.05 mg
     Route: 062
     Dates: start: 19950531, end: 1995
  2. PROVERA [Suspect]
     Indication: MENOPAUSE
     Dosage: 10 mg,
     Route: 048
     Dates: start: 19940527, end: 19960226
  3. ORTHO-EST [Suspect]
     Indication: MENOPAUSE
     Dates: start: 19940527
  4. ESTRACE [Suspect]
     Indication: MENOPAUSE
     Route: 048
     Dates: start: 19940624, end: 199603
  5. PREMPRO [Suspect]
     Indication: MENOPAUSE
     Route: 048
     Dates: start: 19960405, end: 19961011
  6. PREMPRO [Suspect]
     Dates: start: 1997
  7. PREMARIN                                /NEZ/ [Suspect]
  8. NORLUTATE [Suspect]
  9. CLIMARA [Suspect]
     Indication: MENOPAUSE
     Dosage: 0.1 mg,
     Dates: start: 19950622
  10. EVISTA [Concomitant]
     Dates: start: 1998, end: 200509
  11. CALCIUM [Concomitant]
  12. CLONAZEPAM [Concomitant]

REACTIONS (22)
  - Pulmonary mass [Unknown]
  - Lung disorder [Unknown]
  - Spinal cord disorder [Unknown]
  - Paraesthesia [Unknown]
  - Nuclear magnetic resonance imaging abnormal [Unknown]
  - Breast cancer [Recovering/Resolving]
  - Breast calcifications [Unknown]
  - Oestrogen receptor assay positive [Unknown]
  - Progesterone receptor assay positive [Unknown]
  - Biopsy breast abnormal [Unknown]
  - Depression [Unknown]
  - Anxiety [Unknown]
  - Injury [Unknown]
  - Deformity [Unknown]
  - Pain [Unknown]
  - Atrophic vulvovaginitis [Unknown]
  - Rectal polyp [Unknown]
  - Periarthritis [Unknown]
  - Chondropathy [Unknown]
  - Hot flush [Unknown]
  - Neuropathy peripheral [Not Recovered/Not Resolved]
  - Neuralgia [Not Recovered/Not Resolved]
